FAERS Safety Report 6204423-X (Version None)
Quarter: 2009Q2

REPORT INFORMATION
  Report Type: 
  Country: None (occurrence: None)
  Receive Date: 20090527
  Receipt Date: 20090515
  Transmission Date: 20091009
  Serious: Yes (Other)
  Sender: FDA-Public Use
  Company Number: JP-PFIZER INC-2009202223

PATIENT
  Age: 70 Year

DRUGS (1)
  1. SULPERAZON [Suspect]
     Dosage: UNK G, UNK
     Dates: start: 20090410, end: 20090419

REACTIONS (1)
  - INTERSTITIAL LUNG DISEASE [None]
